FAERS Safety Report 11806113 (Version 1)
Quarter: 2015Q4

REPORT INFORMATION
  Report Type: Spontaneous
  Country: US (occurrence: US)
  Receive Date: 20151207
  Receipt Date: 20151207
  Transmission Date: 20160305
  Serious: Yes (Hospitalization, Other)
  Sender: FDA-Public Use
  Company Number: US-ACTAVIS-2015-26736

PATIENT
  Age: 35 Year
  Sex: Female

DRUGS (1)
  1. OXYCODONE HYDROCHLORIDE (AELLC) [Suspect]
     Active Substance: OXYCODONE HYDROCHLORIDE
     Indication: BACK PAIN
     Dosage: UNK
     Route: 048

REACTIONS (5)
  - Respiratory depression [Recovering/Resolving]
  - Quadriplegia [Recovering/Resolving]
  - Spinal cord ischaemia [Recovering/Resolving]
  - Hypoxia [Recovering/Resolving]
  - Intentional overdose [Unknown]
